FAERS Safety Report 18920121 (Version 1)
Quarter: 2021Q1

REPORT INFORMATION
  Report Type: Spontaneous
  Country: BE (occurrence: BE)
  Receive Date: 20210222
  Receipt Date: 20210222
  Transmission Date: 20210420
  Serious: Yes (Hospitalization)
  Sender: FDA-Public Use
  Company Number: BE-TEVA-2021-BE-1880836

PATIENT
  Age: 65 Year
  Sex: Male
  Weight: 93 kg

DRUGS (9)
  1. FRAXIPARINE 3800 IU AXA/0,4 ML [Concomitant]
     Dosage: 1 DOSAGE FORMS
     Route: 058
  2. SIMVASTATINE 40 MG [Concomitant]
     Active Substance: SIMVASTATIN
     Dosage: 1 DOSAGE FORMS
     Route: 048
  3. DAFALGAN [Concomitant]
     Active Substance: ACETAMINOPHEN
     Dosage: 3 DOSAGE FORMS
     Route: 048
  4. HEXTRIL [Concomitant]
     Active Substance: HEXETIDINE
     Dosage: 3 DOSAGE FORMS
     Route: 002
  5. LITICAN SOLUTION INJECTABLE [Concomitant]
     Route: 042
     Dates: start: 20210121, end: 20210121
  6. FLURACEDYL [Concomitant]
     Active Substance: FLUOROURACIL
     Dosage: BOLUS 400 MG / M  ON 01/21/2021 + 2?DAY PUMP 2400 MG / M  FROM 01/21/2021 TO 01/23/2021
     Dates: start: 20210121, end: 20210121
  7. IBUPROFEN 400 MG [Concomitant]
     Active Substance: IBUPROFEN
     Dosage: 3 DOSAGE FORMS
     Route: 048
  8. BUSCOPAN 20 MG [Concomitant]
     Dosage: IF NECESSARY
     Route: 048
  9. VORINA [Suspect]
     Active Substance: LEUCOVORIN SODIUM
     Dosage: 400 MG/M2, UNIT DOSE: 400 MG/M2
     Route: 065
     Dates: start: 20210121, end: 20210121

REACTIONS (2)
  - Body temperature increased [Recovered/Resolved]
  - Chills [Recovered/Resolved]

NARRATIVE: CASE EVENT DATE: 20210121
